FAERS Safety Report 10788216 (Version 1)
Quarter: 2015Q1

REPORT INFORMATION
  Report Type: Spontaneous
  Country: IT (occurrence: None)
  Receive Date: 20150210
  Receipt Date: 20150210
  Transmission Date: 20150721
  Serious: Yes (Hospitalization, Disabling)
  Sender: FDA-Public Use
  Company Number: 2729234

PATIENT
  Age: 53 Year
  Sex: Male
  Weight: 73 kg

DRUGS (4)
  1. ZOLEDRONIC ACID [Suspect]
     Active Substance: ZOLEDRONIC ACID
     Indication: OSTEITIS DEFORMANS
     Route: 042
  2. CHOLECALCIFEROL [Concomitant]
     Active Substance: CHOLECALCIFEROL
  3. ADEFOVIR [Suspect]
     Active Substance: ADEFOVIR
     Indication: CHRONIC HEPATITIS B
  4. LAMIVUDINE. [Concomitant]
     Active Substance: LAMIVUDINE

REACTIONS (14)
  - Condition aggravated [None]
  - Rib fracture [None]
  - Fatigue [None]
  - Abasia [None]
  - Hypophosphataemia [None]
  - Hypocalcaemia [None]
  - Asthenia [None]
  - Osteomalacia [None]
  - Multiple fractures [None]
  - Dyspnoea [None]
  - Hypokalaemia [None]
  - Hypouricaemia [None]
  - Metabolic acidosis [None]
  - Renal impairment [None]
